FAERS Safety Report 24062685 (Version 4)
Quarter: 2024Q3

REPORT INFORMATION
  Report Type: Spontaneous
  Country: JP (occurrence: JP)
  Receive Date: 20240708
  Receipt Date: 20240718
  Transmission Date: 20241017
  Serious: Yes (Death, Hospitalization, Other)
  Sender: NOVARTIS
  Company Number: JP-002147023-NVSJ2024JP007089

PATIENT
  Age: 58 Year
  Sex: Female

DRUGS (1)
  1. GLIVEC [Suspect]
     Active Substance: IMATINIB MESYLATE
     Indication: Gastrointestinal stromal tumour
     Dosage: 400 MG
     Route: 048
     Dates: start: 20100407, end: 20110929

REACTIONS (7)
  - General physical health deterioration [Fatal]
  - Gastrointestinal stromal tumour [Fatal]
  - Malignant neoplasm progression [Fatal]
  - Excessive granulation tissue [Unknown]
  - Oesophageal stenosis [Unknown]
  - Pneumonia [Unknown]
  - Oesophagobronchial fistula [Unknown]

NARRATIVE: CASE EVENT DATE: 20111018
